FAERS Safety Report 25259241 (Version 1)
Quarter: 2025Q2

REPORT INFORMATION
  Report Type: Spontaneous
  Country: US (occurrence: US)
  Receive Date: 20250501
  Receipt Date: 20250501
  Transmission Date: 20250716
  Serious: No
  Sender: MYLAN
  Company Number: US-MYLANLABS-2025M1035145

PATIENT
  Age: 67 Year
  Sex: Male

DRUGS (8)
  1. FENTANYL TRANSDERMAL SYSTEM [Suspect]
     Active Substance: FENTANYL
     Indication: Back pain
     Dosage: 100 MICROGRAM, QH (PER HOUR)
     Dates: start: 202504
  2. FENTANYL TRANSDERMAL SYSTEM [Suspect]
     Active Substance: FENTANYL
     Indication: Lumbar radiculopathy
     Dosage: 100 MICROGRAM, QH (PER HOUR)
     Route: 062
     Dates: start: 202504
  3. FENTANYL TRANSDERMAL SYSTEM [Suspect]
     Active Substance: FENTANYL
     Dosage: 100 MICROGRAM, QH (PER HOUR)
     Route: 062
     Dates: start: 202504
  4. FENTANYL TRANSDERMAL SYSTEM [Suspect]
     Active Substance: FENTANYL
     Dosage: 100 MICROGRAM, QH (PER HOUR)
     Dates: start: 202504
  5. MORPHINE [Concomitant]
     Active Substance: MORPHINE
     Indication: Breakthrough pain
  6. MORPHINE [Concomitant]
     Active Substance: MORPHINE
     Route: 065
  7. MORPHINE [Concomitant]
     Active Substance: MORPHINE
     Route: 065
  8. MORPHINE [Concomitant]
     Active Substance: MORPHINE

REACTIONS (1)
  - Drug ineffective [Unknown]

NARRATIVE: CASE EVENT DATE: 20250401
